FAERS Safety Report 5529352-6 (Version None)
Quarter: 2007Q4

REPORT INFORMATION
  Report Type: 
  Country: None (occurrence: None)
  Receive Date: 20071129
  Receipt Date: 20071121
  Transmission Date: 20080405
  Serious: Yes (Hospitalization)
  Sender: FDA-Public Use
  Company Number: A0683074A

PATIENT
  Sex: Male

DRUGS (3)
  1. AVANDIA [Suspect]
     Indication: DIABETES MELLITUS
     Route: 048
  2. GLIPIZIDE [Concomitant]
  3. DIALYSIS [Concomitant]

REACTIONS (2)
  - CARDIAC OPERATION [None]
  - HYPERTENSION [None]
